FAERS Safety Report 5476234-4 (Version None)
Quarter: 2007Q3

REPORT INFORMATION
  Report Type: 
  Country: None (occurrence: None)
  Receive Date: 20070904
  Receipt Date: 20070710
  Transmission Date: 20080115
  Serious: No
  Sender: FDA-Public Use
  Company Number: PHEH2007US08196

PATIENT
  Age: 84 Year
  Sex: Female

DRUGS (1)
  1. ENABLEX [Suspect]
     Indication: HYPERTONIC BLADDER
     Dosage: 7.5 MG, QHS, ORAL
     Route: 048
     Dates: start: 20070430, end: 20070520

REACTIONS (3)
  - HOT FLUSH [None]
  - INSOMNIA [None]
  - PAIN [None]
